FAERS Safety Report 4488621-1 (Version None)
Quarter: 2004Q4

REPORT INFORMATION
  Report Type: 
  Country: None (occurrence: None)
  Receive Date: 20041025
  Receipt Date: 20041012
  Transmission Date: 20050328
  Serious: Yes (Hospitalization, Other)
  Sender: FDA-Public Use
  Company Number: 2004050859

PATIENT
  Age: 62 Year
  Sex: Male
  Weight: 82 kg

DRUGS (18)
  1. LIPITOR [Suspect]
     Indication: CARDIOVASCULAR DISORDER
     Dosage: 80 MG (80 MG, 1 IN 1 D), ORAL
     Route: 048
     Dates: start: 20031101, end: 20040330
  2. LIPITOR [Suspect]
     Indication: HYPERLIPIDAEMIA
     Dosage: 80 MG (80 MG, 1 IN 1 D), ORAL
     Route: 048
     Dates: start: 20031101, end: 20040330
  3. METOPROLOL SUCCINATE [Concomitant]
  4. ASPIRIN [Concomitant]
  5. FUROSEMIDE [Concomitant]
  6. ENALAPRIL MALEATE [Concomitant]
  7. INSULIN LISPRO (INSULIN LISPRO) [Concomitant]
  8. INSULIN GLARGINE (INSULINE GLARGINE) [Concomitant]
  9. CIPROFLOXACIN [Concomitant]
  10. DIXYRAZINE (DIXYRAZINE) [Concomitant]
  11. DIGOXIN [Concomitant]
  12. PREDNISOLONE [Concomitant]
  13. NICOTINE [Concomitant]
  14. ZOPICLONE (ZOPICLONE) [Concomitant]
  15. INSULIN [Concomitant]
  16. DICLOFENAC (DICLOFENAC) [Concomitant]
  17. TRAMADOL HCL [Concomitant]
  18. DIAZEPAM [Concomitant]

REACTIONS (26)
  - ACTIVITIES OF DAILY LIVING IMPAIRED [None]
  - ALANINE AMINOTRANSFERASE INCREASED [None]
  - ALBUMINURIA [None]
  - ANXIETY [None]
  - BALANCE DISORDER [None]
  - BLOOD ALKALINE PHOSPHATASE INCREASED [None]
  - BLOOD BILIRUBIN INCREASED [None]
  - BLOOD CREATINE DECREASED [None]
  - CARDIOVASCULAR DISORDER [None]
  - DYSSTASIA [None]
  - FALL [None]
  - GAMMA-GLUTAMYLTRANSFERASE INCREASED [None]
  - HAEMOGLOBIN INCREASED [None]
  - HYPOAESTHESIA [None]
  - LABORATORY TEST ABNORMAL [None]
  - MOBILITY DECREASED [None]
  - MYOSITIS [None]
  - NASAL OEDEMA [None]
  - NEUROPATHY [None]
  - ORAL FUNGAL INFECTION [None]
  - PLEURAL DISORDER [None]
  - PNEUMONIA [None]
  - POLYMYOSITIS [None]
  - RENAL DISORDER [None]
  - RESTRICTIVE PULMONARY DISEASE [None]
  - RHABDOMYOLYSIS [None]
